FAERS Safety Report 8512514-3 (Version None)
Quarter: 2012Q3

REPORT INFORMATION
  Report Type: 
  Country: None (occurrence: None)
  Receive Date: 20120716
  Receipt Date: 20120706
  Transmission Date: 20120928
  Serious: Yes (Other)
  Sender: FDA-Public Use
  Company Number: FR-VIIV HEALTHCARE LIMITED-B0813122A

PATIENT
  Sex: Male

DRUGS (3)
  1. REYATAZ [Suspect]
     Indication: HIV INFECTION
     Dosage: 400MG PER DAY
     Route: 048
     Dates: start: 20111208
  2. TRIZIVIR [Concomitant]
     Indication: HIV INFECTION
     Route: 065
     Dates: end: 20111201
  3. ABACAVIR SULFATE/LAMIVUDINE [Suspect]
     Indication: HIV INFECTION
     Dosage: 1TAB PER DAY
     Route: 048
     Dates: start: 20111208

REACTIONS (7)
  - BLOOD CHOLESTEROL INCREASED [None]
  - LIPOATROPHY [None]
  - LIPODYSTROPHY ACQUIRED [None]
  - LOW DENSITY LIPOPROTEIN DECREASED [None]
  - HYPERBILIRUBINAEMIA [None]
  - OCULAR ICTERUS [None]
  - WEIGHT INCREASED [None]
